FAERS Safety Report 6480343-0 (Version None)
Quarter: 2009Q4

REPORT INFORMATION
  Report Type: 
  Country: None (occurrence: None)
  Receive Date: 20091208
  Receipt Date: 20091130
  Transmission Date: 20100525
  Serious: No
  Sender: FDA-Public Use
  Company Number: US-B.I. PHARMACEUTICALS,INC./RIDGEFIELD-2009-BP-13760BP

PATIENT
  Age: 52 Year
  Sex: Male

DRUGS (3)
  1. FLOMAX [Suspect]
     Indication: PROSTATOMEGALY
     Dosage: 0.4 MG
     Route: 048
     Dates: start: 20091001
  2. MONOPRIL [Concomitant]
     Indication: HYPERTENSION
  3. AVODART [Concomitant]
     Indication: PROSTATOMEGALY

REACTIONS (3)
  - EJACULATION FAILURE [None]
  - INCORRECT DOSE ADMINISTERED [None]
  - NOCTURIA [None]
